FAERS Safety Report 23939195 (Version 1)
Quarter: 2024Q2

REPORT INFORMATION
  Report Type: Spontaneous
  Country: US (occurrence: US)
  Receive Date: 20240604
  Receipt Date: 20240604
  Transmission Date: 20240716
  Serious: Yes (Other)
  Sender: FDA-Public Use
  Company Number: US-BRISTOL-MYERS SQUIBB COMPANY-2024-085246

PATIENT
  Age: 77 Year
  Sex: Male
  Weight: 107 kg

DRUGS (2)
  1. ELIQUIS [Suspect]
     Active Substance: APIXABAN
     Indication: Cerebrovascular accident prophylaxis
     Dosage: IN THE MORNING AND AT BEDTIME?DISPENSE: 180 TABLET
     Route: 048
     Dates: start: 20230908
  2. VIAGRA [Concomitant]
     Active Substance: SILDENAFIL CITRATE
     Indication: Erectile dysfunction
     Dates: start: 20210111

REACTIONS (3)
  - Acquired ATTR amyloidosis [Unknown]
  - Heart failure with preserved ejection fraction [Unknown]
  - Lower gastrointestinal haemorrhage [Unknown]

NARRATIVE: CASE EVENT DATE: 20240501
